FAERS Safety Report 20486780 (Version 1)
Quarter: 2022Q1

REPORT INFORMATION
  Report Type: Spontaneous
  Country: US (occurrence: US)
  Receive Date: 20220217
  Receipt Date: 20220217
  Transmission Date: 20220423
  Serious: Yes (Other)
  Sender: FDA-Public Use
  Company Number: US-Albireo AB-2021ALB000107

PATIENT
  Age: 2 Year
  Sex: Male

DRUGS (1)
  1. BYLVAY [Suspect]
     Active Substance: ODEVIXIBAT
     Indication: Progressive familial intrahepatic cholestasis
     Dosage: 2-200 MCG CAPSULES-SPRINKLES
     Route: 048
     Dates: start: 20210903

REACTIONS (6)
  - Liver function test abnormal [Not Recovered/Not Resolved]
  - Transaminases abnormal [Not Recovered/Not Resolved]
  - Liver function test abnormal [Not Recovered/Not Resolved]
  - Ocular icterus [Not Recovered/Not Resolved]
  - Therapeutic response unexpected [Unknown]
  - Therapeutic response unexpected [Unknown]
